FAERS Safety Report 14115273 (Version 2)
Quarter: 2017Q4

REPORT INFORMATION
  Report Type: Report from Study
  Country: US (occurrence: US)
  Receive Date: 20171023
  Receipt Date: 20171024
  Transmission Date: 20180321
  Serious: Yes (Other)
  Sender: FDA-Public Use
  Company Number: US-009507513-1710USA011314

PATIENT
  Age: 68 Year
  Sex: Female
  Weight: 71.2 kg

DRUGS (14)
  1. ROBITUSSIN DM [Concomitant]
     Active Substance: DEXTROMETHORPHAN HYDROBROMIDE\GUAIFENESIN
     Dosage: UNK
     Dates: start: 20170915
  2. MELOXICAM. [Concomitant]
     Active Substance: MELOXICAM
     Dosage: UNK
     Dates: start: 20171002
  3. MIRTAZAPINE. [Concomitant]
     Active Substance: MIRTAZAPINE
     Dosage: UNK
     Dates: start: 20170801
  4. OLANZAPINE. [Concomitant]
     Active Substance: OLANZAPINE
     Dosage: UNK
     Dates: start: 20171002
  5. OXYCODONE [Concomitant]
     Active Substance: OXYCODONE
     Dosage: UNK
     Dates: start: 20170801
  6. PERCOCET [Concomitant]
     Active Substance: ACETAMINOPHEN\OXYCODONE HYDROCHLORIDE
     Dosage: UNK
     Dates: start: 20170929
  7. OMEPRAZOLE. [Concomitant]
     Active Substance: OMEPRAZOLE
     Dosage: UNK
     Dates: start: 20170929
  8. EPACADOSTAT [Suspect]
     Active Substance: EPACADOSTAT
     Indication: NEOPLASM
     Dosage: 100 MG, BID
     Dates: start: 20170911, end: 20171010
  9. EMLA [Concomitant]
     Active Substance: LIDOCAINE\PRILOCAINE
     Dosage: UNK
     Dates: start: 20160923
  10. TESSALON [Concomitant]
     Active Substance: BENZONATATE
     Dosage: UNK
     Dates: start: 20170916
  11. PEMBROLIZUMAB. [Suspect]
     Active Substance: PEMBROLIZUMAB
     Indication: NEOPLASM
     Dosage: 200 MG, Q3W
     Route: 042
     Dates: start: 20170911, end: 20171010
  12. AZACITIDINE. [Suspect]
     Active Substance: AZACITIDINE
     Indication: NEOPLASM
     Dosage: DAILY DOSE: 100 MG FOR 5 DAYS
     Route: 065
     Dates: start: 20170911, end: 20171007
  13. GABAPENTIN. [Concomitant]
     Active Substance: GABAPENTIN
     Dosage: UNK
     Dates: start: 20171002
  14. CHERATUSSIN AC [Concomitant]
     Active Substance: CODEINE PHOSPHATE\GUAIFENESIN
     Dosage: UNK
     Dates: start: 20171009

REACTIONS (4)
  - Dyspnoea [Recovering/Resolving]
  - Confusional state [Recovering/Resolving]
  - Cough [Recovering/Resolving]
  - Fatigue [Recovering/Resolving]

NARRATIVE: CASE EVENT DATE: 20171010
